FAERS Safety Report 8811997 (Version 1)
Quarter: 2012Q4

REPORT INFORMATION
  Report Type: 
  Country: US (occurrence: US)
  Receive Date: 20120927
  Receipt Date: 20120927
  Transmission Date: 20130627
  Serious: Yes (Other)
  Sender: FDA-Public Use
  Company Number: US-PFIZER INC-2012236798

PATIENT
  Age: 51 Year
  Sex: Female
  Weight: 68.03 kg

DRUGS (2)
  1. PREMPHASE [Suspect]
     Indication: MENOPAUSAL SYMPTOMS
     Dosage: 1 DF (0.625 mg/ 5 mg), once a day
     Route: 048
     Dates: start: 201205, end: 20120801
  2. ASPIRIN [Concomitant]
     Dosage: 81 mg, 1x/day

REACTIONS (4)
  - Ovarian cyst [Not Recovered/Not Resolved]
  - Abdominal pain upper [Not Recovered/Not Resolved]
  - Alopecia [Not Recovered/Not Resolved]
  - Abdominal symptom [Not Recovered/Not Resolved]
